FAERS Safety Report 22104908 (Version 1)
Quarter: 2023Q1

REPORT INFORMATION
  Report Type: Spontaneous
  Country: US (occurrence: US)
  Receive Date: 20230316
  Receipt Date: 20230316
  Transmission Date: 20230418
  Serious: No
  Sender: FDA-Public Use
  Company Number: US-BEH-2023156374

PATIENT
  Age: 56 Year
  Sex: Female

DRUGS (23)
  1. PRIVIGEN [Suspect]
     Active Substance: HUMAN IMMUNOGLOBULIN G
     Indication: Abnormal weight gain
     Dosage: 20 GRAM, DAILY X 3 DAYS EVERY 10 WEEKS
     Route: 042
  2. METFORMIN HYDROCHLORIDE [Concomitant]
     Active Substance: METFORMIN HYDROCHLORIDE
  3. FAMOTIDINE [Concomitant]
     Active Substance: FAMOTIDINE
  4. LINZESS [Concomitant]
     Active Substance: LINACLOTIDE
  5. NYSTATIN [Concomitant]
     Active Substance: NYSTATIN
  6. VITAMIN D NOS [Concomitant]
     Active Substance: VITAMIN D NOS
  7. .ALPHA.-TOCOPHEROL [Concomitant]
     Active Substance: .ALPHA.-TOCOPHEROL
  8. CLONAZEPAM [Concomitant]
     Active Substance: CLONAZEPAM
  9. DICYCLOMINE [Concomitant]
     Active Substance: DICYCLOMINE HYDROCHLORIDE
  10. GABAPENTIN [Concomitant]
     Active Substance: GABAPENTIN
  11. HYDROCHLOROTHIAZIDE [Concomitant]
     Active Substance: HYDROCHLOROTHIAZIDE
  12. HYDROCODONE [Concomitant]
     Active Substance: HYDROCODONE
  13. IMURAN [Concomitant]
     Active Substance: AZATHIOPRINE
  14. IRON [Concomitant]
     Active Substance: IRON
  15. MELOXICAM [Concomitant]
     Active Substance: MELOXICAM
  16. MIRAL [MAGNESIUM HYDROXIDE;POTASSIUM CHLORIDE] [Concomitant]
  17. VITAMINS [Concomitant]
     Active Substance: VITAMINS
  18. NEXPLANON [Concomitant]
     Active Substance: ETONOGESTREL
  19. PREDNISOLONE [Concomitant]
     Active Substance: PREDNISOLONE
  20. PROAIR HFA [Concomitant]
     Active Substance: ALBUTEROL SULFATE
  21. SOMA [Concomitant]
     Active Substance: CARISOPRODOL
  22. TRAMADOL HCL [Concomitant]
     Active Substance: TRAMADOL HYDROCHLORIDE
  23. VITAMIN B12 [Concomitant]
     Active Substance: CYANOCOBALAMIN

REACTIONS (4)
  - Ear infection [Unknown]
  - Hypersensitivity [Unknown]
  - No adverse event [Unknown]
  - Off label use [Unknown]

NARRATIVE: CASE EVENT DATE: 20230201
